FAERS Safety Report 10853485 (Version 1)
Quarter: 2015Q1

REPORT INFORMATION
  Report Type: Spontaneous
  Country: CH (occurrence: CH)
  Receive Date: 20150223
  Receipt Date: 20150223
  Transmission Date: 20150721
  Serious: Yes (Other)
  Sender: FDA-Public Use
  Company Number: CH-009507513-1502CHE007549

PATIENT
  Sex: Female

DRUGS (1)
  1. IMPLANON [Suspect]
     Active Substance: ETONOGESTREL
     Indication: CONTRACEPTION
     Dosage: UNK
     Route: 058
     Dates: start: 2012

REACTIONS (4)
  - Device difficult to use [Unknown]
  - Surgery [Unknown]
  - Medical device complication [Unknown]
  - General anaesthesia [Unknown]

NARRATIVE: CASE EVENT DATE: 201502
